FAERS Safety Report 8151570-1 (Version None)
Quarter: 2012Q1

REPORT INFORMATION
  Report Type: 
  Country: None (occurrence: None)
  Receive Date: 20120220
  Receipt Date: 20120207
  Transmission Date: 20120608
  Serious: Yes (Other)
  Sender: FDA-Public Use
  Company Number: US-ROCHE-793731

PATIENT
  Sex: Female
  Weight: 68.1 kg

DRUGS (4)
  1. ERYTHROMYCIN [Concomitant]
  2. ACCUTANE [Suspect]
  3. TETRACYCLINE [Concomitant]
  4. ACCUTANE [Suspect]
     Indication: ACNE

REACTIONS (4)
  - INFLAMMATORY BOWEL DISEASE [None]
  - DEPRESSION [None]
  - IRRITABLE BOWEL SYNDROME [None]
  - HYPERTENSION [None]
